FAERS Safety Report 11059516 (Version 1)
Quarter: 2015Q2

REPORT INFORMATION
  Report Type: Spontaneous
  Country: FR (occurrence: FR)
  Receive Date: 20150423
  Receipt Date: 20150423
  Transmission Date: 20150821
  Serious: Yes (Hospitalization, Other)
  Sender: FDA-Public Use
  Company Number: FR-PFIZER INC-2015133781

PATIENT
  Age: 55 Year
  Sex: Female

DRUGS (14)
  1. MOCLAMINE [Suspect]
     Active Substance: MOCLOBEMIDE
     Dosage: 300 MG IN THE MORNING, 150 MG AT NOON AND IN THE EVENING
     Route: 048
     Dates: start: 20141201, end: 20150117
  2. DAFALGAN [Concomitant]
     Active Substance: ACETAMINOPHEN
     Indication: PAIN
     Dosage: UNK, AS NEEDED
     Dates: end: 20150116
  3. EFFEXOR LP [Suspect]
     Active Substance: VENLAFAXINE HYDROCHLORIDE
     Dosage: 150 MG, 2X/DAY
     Route: 048
     Dates: start: 20141107, end: 20150117
  4. MOCLAMINE [Suspect]
     Active Substance: MOCLOBEMIDE
     Indication: BIPOLAR I DISORDER
     Dosage: 300 MG, DAILY
     Route: 048
     Dates: start: 20141119, end: 20141124
  5. IMOVANE [Concomitant]
     Active Substance: ZOPICLONE
     Dosage: 0.5 DF, 1X/DAY (IN THE EVENING)
     Dates: end: 20150116
  6. EFFEXOR LP [Suspect]
     Active Substance: VENLAFAXINE HYDROCHLORIDE
     Indication: BIPOLAR I DISORDER
     Dosage: 150 MG, DAILY
     Route: 048
     Dates: start: 20141024, end: 20141103
  7. THERALENE [Concomitant]
     Active Substance: TRIMEPRAZINE
     Dosage: 15 GTT, UNK
  8. PROPOFOL FRESENIUS [Concomitant]
     Active Substance: PROPOFOL
     Indication: GENERAL ANAESTHESIA
     Dosage: UNK
     Dates: start: 20150116, end: 20150116
  9. CELOCURINE [Concomitant]
     Active Substance: SUCCINYLCHOLINE CHLORIDE
     Dosage: UNK
     Dates: start: 20150126, end: 20150126
  10. GUTRON [Concomitant]
     Active Substance: MIDODRINE
     Dosage: 7.5 MG, 3X/DAY
  11. PROPOFOL FRESENIUS [Concomitant]
     Active Substance: PROPOFOL
     Dosage: UNK
     Dates: start: 20150126, end: 20150126
  12. MOCLAMINE [Suspect]
     Active Substance: MOCLOBEMIDE
     Dosage: 450 MG, DAILY
     Route: 048
     Dates: start: 20141125, end: 20141130
  13. EFFEXOR LP [Suspect]
     Active Substance: VENLAFAXINE HYDROCHLORIDE
     Dosage: 225 MG, DAILY
     Route: 048
     Dates: start: 20141104, end: 20141106
  14. CELOCURINE [Concomitant]
     Active Substance: SUCCINYLCHOLINE CHLORIDE
     Indication: GENERAL ANAESTHESIA
     Dosage: UNK
     Dates: start: 20150116, end: 20150116

REACTIONS (4)
  - Pyrexia [Unknown]
  - Liver injury [Recovered/Resolved]
  - Pneumonia [Unknown]
  - Rash [Unknown]

NARRATIVE: CASE EVENT DATE: 2015
